FAERS Safety Report 7702470-X (Version None)
Quarter: 2011Q3

REPORT INFORMATION
  Report Type: 
  Country: None (occurrence: None)
  Receive Date: 20110823
  Receipt Date: 20110815
  Transmission Date: 20111222
  Serious: Yes (Hospitalization)
  Sender: FDA-Public Use
  Company Number: US-BIOGENIDEC-2011BI023578

PATIENT
  Age: 58 Year
  Sex: Female

DRUGS (1)
  1. TYSABRI [Suspect]
     Indication: MULTIPLE SCLEROSIS
     Route: 042
     Dates: start: 20090831

REACTIONS (8)
  - MULTIPLE SCLEROSIS RELAPSE [None]
  - INFECTED BITES [None]
  - DIZZINESS [None]
  - APHASIA [None]
  - ABDOMINAL DISCOMFORT [None]
  - ANIMAL BITE [None]
  - COORDINATION ABNORMAL [None]
  - MOTOR DYSFUNCTION [None]
